FAERS Safety Report 8017728-7 (Version None)
Quarter: 2012Q1

REPORT INFORMATION
  Report Type: 
  Country: None (occurrence: None)
  Receive Date: 20120103
  Receipt Date: 20111229
  Transmission Date: 20120608
  Serious: No
  Sender: FDA-Public Use
  Company Number: US-PFIZER INC-2011316017

PATIENT
  Age: 39 Year
  Sex: Female

DRUGS (2)
  1. ALDACTONE [Suspect]
     Indication: BLOOD TESTOSTERONE INCREASED
     Dosage: 100 MG, 1X/DAY (1 IN 1 D)
     Dates: start: 20090901, end: 20101201
  2. LEXAPRO [Suspect]
     Indication: ANXIETY
     Dosage: 5 MG, 1X/DAY (1 IN 1 D)
     Route: 048
     Dates: start: 20100401, end: 20101201

REACTIONS (3)
  - AMENORRHOEA [None]
  - INFLUENZA LIKE ILLNESS [None]
  - ALOPECIA [None]
